FAERS Safety Report 13142275 (Version 4)
Quarter: 2017Q2

REPORT INFORMATION
  Report Type: Spontaneous
  Country: US (occurrence: US)
  Receive Date: 20170124
  Receipt Date: 20170421
  Transmission Date: 20170830
  Serious: Yes (Other)
  Sender: FDA-Public Use
  Company Number: US-PFIZER INC-2017028621

PATIENT
  Age: 70 Year
  Sex: Female

DRUGS (22)
  1. WARFARIN SODIUM. [Concomitant]
     Active Substance: WARFARIN SODIUM
     Dosage: 4 MG, 1X/DAY (1 TAB PM PER DAY)
  2. DIGOXIN. [Concomitant]
     Active Substance: DIGOXIN
     Dosage: 250 MCG 1 TABLET A DAY
  3. VIT B-6 [Concomitant]
     Dosage: 100 MG 1 TABLET A DAY
  4. PRAVASTATIN SODIUM. [Concomitant]
     Active Substance: PRAVASTATIN SODIUM
     Dosage: 20 MG TAB 1 TABLET A DAY
  5. KLOR-CON M20 [Concomitant]
     Active Substance: POTASSIUM CHLORIDE
     Dosage: 60 MG, 4X/DAY (3 TAB 4XDAY)
  6. VENTOLIN HFA [Concomitant]
     Active Substance: ALBUTEROL SULFATE
     Dosage: 1 PUFF, AS NEEDED
  7. OXYGEN. [Concomitant]
     Active Substance: OXYGEN
     Dosage: AT NIGHT 3 LITERS
  8. FUROSEMIDE. [Concomitant]
     Active Substance: FUROSEMIDE
     Dosage: 40 MG TABLET, 3 TAB/AM , 2 TAB /PM PER DAY
  9. METOLAZONE. [Concomitant]
     Active Substance: METOLAZONE
     Dosage: 2.5 MG, 2X/WEEK (1 TAB/SAT 1 TAB WED)
  10. LOPERAMIDE [Concomitant]
     Active Substance: LOPERAMIDE
     Dosage: 2 MG, AS NEEDED (1 TAB AS NEEDED)
  11. METOPROLOL SUCC ER [Concomitant]
     Active Substance: METOPROLOL SUCCINATE
     Dosage: 2.5 MG, 1X/DAY
  12. LETAIRIS [Concomitant]
     Active Substance: AMBRISENTAN
     Dosage: 5 MG, 1X/DAY
  13. ASPIRIN. [Concomitant]
     Active Substance: ASPIRIN
     Dosage: 81, 1 TAB/DAY
  14. VICODIN [Concomitant]
     Active Substance: ACETAMINOPHEN\HYDROCODONE BITARTRATE
     Indication: HERPES ZOSTER
     Dosage: 5-325, 1 TABLET EVERY 4 HRS
  15. REVATIO [Suspect]
     Active Substance: SILDENAFIL CITRATE
     Indication: DYSPNOEA
     Dosage: 20 MG, 3X/DAY (1 TAB 3 X DAY)
     Dates: start: 2004
  16. REMODULIN [Concomitant]
     Active Substance: TREPROSTINIL
     Dosage: 2.5 (6 ML) 3.50 MICROLITER PER/HOUR SYR 48 H
     Route: 042
  17. FOLIC ACID. [Concomitant]
     Active Substance: FOLIC ACID
     Dosage: 400 MCG 1 TABLET A DAY
  18. FERROUS SULFATE. [Concomitant]
     Active Substance: FERROUS SULFATE
     Dosage: 325 UG, 1X/DAY
  19. GABAPENTIN. [Concomitant]
     Active Substance: GABAPENTIN
     Indication: HERPES ZOSTER
     Dosage: 300 MG, AS NEEDED
  20. RITUXAN [Concomitant]
     Active Substance: RITUXIMAB
  21. NASONEX [Concomitant]
     Active Substance: MOMETASONE FUROATE
     Dosage: UNK UNK, AS NEEDED
  22. METOPROLOL SUCCINATE. [Concomitant]
     Active Substance: METOPROLOL SUCCINATE
     Dosage: 200 MG, 3X/DAY (100 MG, 2 TABS 3 X DAY)

REACTIONS (2)
  - Hypoacusis [Recovering/Resolving]
  - Ear infection [Not Recovered/Not Resolved]
